FAERS Safety Report 15761573 (Version 2)
Quarter: 2019Q3

REPORT INFORMATION
  Report Type: Spontaneous
  Country: JP (occurrence: JP)
  Receive Date: 20181226
  Receipt Date: 20190904
  Transmission Date: 20191004
  Serious: Yes (Other)
  Sender: FDA-Public Use
  Company Number: JP-MYLANLABS-2018M1095698

PATIENT
  Age: 15 Year
  Sex: Male

DRUGS (3)
  1. DACTINOMYCIN [Suspect]
     Active Substance: DACTINOMYCIN
     Indication: RHABDOMYOSARCOMA
     Dosage: INVAC1.2 THERAPY FOLLOWED BY VA REGIMEN
     Route: 065
  2. VINCRISTINE [Suspect]
     Active Substance: VINCRISTINE
     Indication: RHABDOMYOSARCOMA
     Dosage: INVAC1.2 THERAPY FOLLOWED BY VA REGIMEN
     Route: 065
  3. CYCLOPHOSPHAMIDE. [Suspect]
     Active Substance: CYCLOPHOSPHAMIDE
     Indication: RHABDOMYOSARCOMA
     Dosage: INVAC1.2 THERAPY
     Route: 065

REACTIONS (6)
  - Haemophagocytic lymphohistiocytosis [Recovering/Resolving]
  - Hepatic failure [Recovered/Resolved]
  - Venoocclusive liver disease [Recovered/Resolved]
  - Cytokine storm [Recovered/Resolved]
  - Disseminated intravascular coagulation [Recovered/Resolved]
  - Hyperferritinaemia [Recovered/Resolved]
